FAERS Safety Report 8017781 (Version 3)
Quarter: 2012Q4

REPORT INFORMATION
  Report Type: 
  Country: GB (occurrence: US)
  Receive Date: 20110630
  Receipt Date: 20121211
  Transmission Date: 20130627
  Serious: Yes (Hospitalization)
  Sender: FDA-Public Use
  Company Number: US-MPIJNJ-2011-02359

PATIENT
  Age: 75 Year
  Sex: Male
  Weight: 81.63 kg

DRUGS (3)
  1. VELCADE [Suspect]
     Indication: B-CELL LYMPHOMA
     Dosage: 2.98 mg, Cyclic
     Route: 042
     Dates: start: 20110113, end: 20110510
  2. RITUXIMAB [Suspect]
     Indication: B-CELL LYMPHOMA
     Dosage: 500 mg, Cyclic
     Route: 042
     Dates: start: 20110113, end: 20110510
  3. BENDAMUSTINE [Suspect]
     Indication: B-CELL LYMPHOMA
     Dosage: 167 mg, Cyclic
     Route: 042
     Dates: start: 20110113, end: 20110426

REACTIONS (1)
  - Skin infection [Recovered/Resolved]
